APPROVED DRUG PRODUCT: BUMETANIDE
Active Ingredient: BUMETANIDE
Strength: 1MG
Dosage Form/Route: TABLET;ORAL
Application: A212470 | Product #002 | TE Code: AB
Applicant: JUBILANT GENERICS LTD
Approved: Aug 5, 2025 | RLD: No | RS: No | Type: RX